FAERS Safety Report 20733390 (Version 1)
Quarter: 2022Q2

REPORT INFORMATION
  Report Type: Spontaneous
  Country: FR (occurrence: FR)
  Receive Date: 20220421
  Receipt Date: 20220421
  Transmission Date: 20220720
  Serious: Yes (Other)
  Sender: FDA-Public Use
  Company Number: FR-BRISTOL-MYERS SQUIBB COMPANY-2022-021587

PATIENT
  Age: 45 Year
  Sex: Male

DRUGS (1)
  1. ELIQUIS [Suspect]
     Active Substance: APIXABAN
     Indication: Thrombosis prophylaxis

REACTIONS (3)
  - Herpes virus infection [Unknown]
  - Arthropathy [Unknown]
  - Fungal infection [Unknown]

NARRATIVE: CASE EVENT DATE: 20220404
